FAERS Safety Report 4330807-0 (Version None)
Quarter: 2004Q1

REPORT INFORMATION
  Report Type: 
  Country: None (occurrence: None)
  Receive Date: 20040331
  Receipt Date: 20040322
  Transmission Date: 20041129
  Serious: No
  Sender: FDA-Public Use
  Company Number: 04-000213

PATIENT
  Sex: Male

DRUGS (1)
  1. DORYX [Suspect]
     Dosage: ORAL
     Route: 048
     Dates: start: 20021201, end: 20030801

REACTIONS (3)
  - ANGER [None]
  - LIGAMENT INJURY [None]
  - MOOD ALTERED [None]
